FAERS Safety Report 8850395 (Version 1)
Quarter: 2012Q4

REPORT INFORMATION
  Report Type: 
  Country: US (occurrence: US)
  Receive Date: 20121019
  Receipt Date: 20121019
  Transmission Date: 20130627
  Serious: Yes (Other)
  Sender: FDA-Public Use
  Company Number: US-BAYER-2012-106737

PATIENT
  Age: 40 Year
  Sex: Female
  Weight: 98 kg

DRUGS (3)
  1. RID 1-2-3 SYSTEM [Suspect]
     Indication: LICE INFESTATION
     Dosage: 1 DF, ONCE
     Dates: start: 20121007
  2. SYNTHROID [Concomitant]
  3. CVS BRAND LICE SPRAY [Concomitant]

REACTIONS (11)
  - Ocular hyperaemia [Recovered/Resolved]
  - Rash erythematous [Recovered/Resolved]
  - Nasal congestion [Recovered/Resolved]
  - Skin warm [Not Recovered/Not Resolved]
  - Oropharyngeal discomfort [Recovered/Resolved]
  - Feeling hot [Not Recovered/Not Resolved]
  - Dizziness [Recovered/Resolved]
  - Sensory disturbance [Not Recovered/Not Resolved]
  - Erythema [Recovered/Resolved]
  - Throat irritation [Recovered/Resolved]
  - Asthma [Recovered/Resolved]
